FAERS Safety Report 8302705-9 (Version None)
Quarter: 2012Q2

REPORT INFORMATION
  Report Type: 
  Country: None (occurrence: None)
  Receive Date: 20120420
  Receipt Date: 20120409
  Transmission Date: 20120825
  Serious: Yes (Hospitalization)
  Sender: FDA-Public Use
  Company Number: US-PERRIGO-12US003075

PATIENT
  Age: 62 Year
  Sex: Female

DRUGS (6)
  1. TAMOXIFEN CITRATE [Concomitant]
     Indication: PRODUCT USED FOR UNKNOWN INDICATION
     Dosage: 10 MG, BID
     Route: 048
  2. ACETAMINOPHEN [Suspect]
     Indication: SUICIDE ATTEMPT
     Dosage: UNKNOWN, SINGLE
     Route: 048
  3. CLONIDINE [Suspect]
     Indication: HOT FLUSH
     Dosage: 0.2 MG AS NEEDED FOR HOT FLASHES
     Route: 048
  4. FUROSEMIDE [Suspect]
     Indication: PRODUCT USED FOR UNKNOWN INDICATION
     Dosage: 40 MG, QD
     Route: 048
  5. CLONIDINE [Suspect]
     Indication: SUICIDE ATTEMPT
     Dosage: 8.4 MG, SINGLE
     Route: 048
  6. FUROSEMIDE [Suspect]
     Indication: SUICIDE ATTEMPT
     Dosage: 2320 MG, SINGLE

REACTIONS (3)
  - ANALGESIC DRUG LEVEL INCREASED [None]
  - HYPOTHERMIA [None]
  - INTENTIONAL OVERDOSE [None]
